FAERS Safety Report 7720070-2 (Version None)
Quarter: 2011Q3

REPORT INFORMATION
  Report Type: 
  Country: None (occurrence: None)
  Receive Date: 20110831
  Receipt Date: 20110822
  Transmission Date: 20111222
  Serious: Yes (Other)
  Sender: FDA-Public Use
  Company Number: CA-SHIRE-ALL1-2011-02861

PATIENT
  Sex: Male
  Weight: 78.458 kg

DRUGS (7)
  1. TYLENOL (CAPLET) [Concomitant]
     Indication: PRODUCT USED FOR UNKNOWN INDICATION
     Dosage: 1000 UNK, OTHER (3-4 PER DOES)
     Route: 048
  2. REPLAGAL [Suspect]
     Indication: FABRY'S DISEASE
     Dosage: UNK, UNKNOWN
     Route: 041
     Dates: end: 20110817
  3. ASPERIN CAFFEINE [Concomitant]
     Indication: PRODUCT USED FOR UNKNOWN INDICATION
     Dosage: 80 UNK, 1X/DAY:QD
     Route: 048
  4. BENADRYL [Concomitant]
     Indication: PRODUCT USED FOR UNKNOWN INDICATION
     Dosage: 50 UNK, OTHER (PRIOR TO REPLAGAL)
     Route: 048
  5. PREDNISONE [Concomitant]
     Indication: PRODUCT USED FOR UNKNOWN INDICATION
     Dosage: 10 UNK, 1X/DAY:QD
     Route: 048
  6. PREDNISONE [Concomitant]
     Dosage: 75 MG, OTHERN (PRIOR TO REPLAGAL)
     Route: 048
  7. PANTOLOC                           /01263204/ [Concomitant]
     Indication: PRODUCT USED FOR UNKNOWN INDICATION
     Dosage: 40 UNK, 1X/DAY:QD
     Route: 048

REACTIONS (10)
  - EYE IRRITATION [None]
  - OCULAR HYPERAEMIA [None]
  - HYPOAESTHESIA [None]
  - FALL [None]
  - SWELLING FACE [None]
  - MALAISE [None]
  - BALANCE DISORDER [None]
  - EYE SWELLING [None]
  - DIZZINESS [None]
  - DYSGEUSIA [None]
